FAERS Safety Report 5726589-8 (Version None)
Quarter: 2008Q2

REPORT INFORMATION
  Report Type: 
  Country: None (occurrence: None)
  Receive Date: 20080502
  Receipt Date: 20080425
  Transmission Date: 20081010
  Serious: Yes (Hospitalization, Other)
  Sender: FDA-Public Use
  Company Number: TR-JNJFOC-20080406414

PATIENT
  Sex: Male
  Weight: 84 kg

DRUGS (11)
  1. DURAGESIC-100 [Suspect]
     Dosage: 100 MCG 1 MATRIX PATCH/72 HOUR
     Route: 062
  2. DURAGESIC-100 [Suspect]
     Indication: PAIN
     Route: 062
  3. CONTRAMAL [Suspect]
     Route: 042
  4. CONTRAMAL [Suspect]
     Indication: PAIN
     Route: 042
  5. M-ESLON [Suspect]
     Route: 048
  6. M-ESLON [Suspect]
     Indication: PAIN
     Route: 048
  7. MORPHINE [Suspect]
     Indication: PAIN
     Route: 058
  8. CATAFLAM [Suspect]
     Route: 048
  9. CATAFLAM [Suspect]
     Indication: PAIN
     Route: 048
  10. REXAPIN [Suspect]
     Indication: DEPRESSION
     Route: 065
  11. PAXIL [Suspect]
     Indication: DEPRESSION
     Route: 065

REACTIONS (1)
  - LIVER FUNCTION TEST ABNORMAL [None]
